FAERS Safety Report 20146762 (Version 1)
Quarter: 2021Q4

REPORT INFORMATION
  Report Type: Report from Study
  Country: US (occurrence: US)
  Receive Date: 20211203
  Receipt Date: 20211203
  Transmission Date: 20220304
  Serious: Yes (Death, Hospitalization)
  Sender: FDA-Public Use
  Company Number: US-BAUSCH-BL-2021-039704

PATIENT
  Age: 69 Year
  Sex: Female

DRUGS (2)
  1. XIFAXAN [Suspect]
     Active Substance: RIFAXIMIN
     Indication: Hepatic cirrhosis
     Route: 065
  2. XIFAXAN [Suspect]
     Active Substance: RIFAXIMIN
     Indication: Autoimmune disorder

REACTIONS (6)
  - Multiple organ dysfunction syndrome [Fatal]
  - Hepatic failure [Fatal]
  - Renal failure [Fatal]
  - Respiratory failure [Fatal]
  - Gastric haemorrhage [Fatal]
  - Hospitalisation [Unknown]

NARRATIVE: CASE EVENT DATE: 20210726
